FAERS Safety Report 10210455 (Version 2)
Quarter: 2014Q3

REPORT INFORMATION
  Report Type: Spontaneous
  Country: AU (occurrence: AU)
  Receive Date: 20140602
  Receipt Date: 20140801
  Transmission Date: 20150326
  Serious: Yes (Other)
  Sender: FDA-Public Use
  Company Number: AU-UCBSA-122600

PATIENT
  Sex: Female

DRUGS (1)
  1. VIMPAT [Suspect]
     Active Substance: LACOSAMIDE
     Dosage: DAILY DOSE: 200MG
     Route: 048

REACTIONS (1)
  - Stress cardiomyopathy [Recovering/Resolving]
